FAERS Safety Report 18141756 (Version 4)
Quarter: 2021Q1

REPORT INFORMATION
  Report Type: Spontaneous
  Country: CN (occurrence: CN)
  Receive Date: 20200812
  Receipt Date: 20210202
  Transmission Date: 20210419
  Serious: Yes (Death, Hospitalization)
  Sender: FDA-Public Use
  Company Number: CN-CELGENEUS-CHN-20200801856

PATIENT
  Age: 65 Year
  Sex: Male
  Weight: 69 kg

DRUGS (12)
  1. CARBOPLATIN. [Suspect]
     Active Substance: CARBOPLATIN
     Indication: NON-SMALL CELL LUNG CANCER
     Dosage: 393 MILLIGRAM
     Route: 041
     Dates: start: 20200529, end: 20200529
  2. RECOMBINANT HUMAN THROMBOPOIETIN [Concomitant]
     Active Substance: THROMBOPOIETIN
     Indication: MYELOSUPPRESSION
     Dosage: 15000 IU (INTERNATIONAL UNIT)
     Route: 065
     Dates: start: 20200612, end: 20200629
  3. SERPLULIMAB. [Suspect]
     Active Substance: SERPLULIMAB
     Indication: SQUAMOUS CELL CARCINOMA
     Dosage: 337 MILLIGRAM
     Route: 041
     Dates: start: 20200529, end: 20200529
  4. RECOMBINANT HUMAN GRANULOCYTE COLONY?STIMULATING FACTOR [Concomitant]
     Active Substance: GRANULOCYTE COLONY-STIMULATING FACTOR NOS
     Route: 058
     Dates: start: 20200715, end: 20200715
  5. SERPLULIMAB. [Suspect]
     Active Substance: SERPLULIMAB
     Route: 041
     Dates: start: 20200701, end: 20200701
  6. CARBOPLATIN. [Suspect]
     Active Substance: CARBOPLATIN
     Dosage: 476 MILLIGRAM
     Route: 041
     Dates: start: 20200701, end: 20200701
  7. RECOMBINANT HUMAN GRANULOCYTE COLONY?STIMULATING FACTOR [Concomitant]
     Active Substance: GRANULOCYTE COLONY-STIMULATING FACTOR NOS
     Indication: MYELOSUPPRESSION
     Route: 058
     Dates: start: 20200610, end: 20200612
  8. ABRAXANE [Suspect]
     Active Substance: PACLITAXEL
     Dosage: 130 MILLIGRAM
     Route: 041
     Dates: start: 20200701, end: 20200715
  9. RECOMBINANT HUMAN THROMBOPOIETIN [Concomitant]
     Active Substance: THROMBOPOIETIN
     Dosage: 15000 IU (INTERNATIONAL UNIT)
     Route: 065
     Dates: start: 20200724
  10. ABRAXANE [Suspect]
     Active Substance: PACLITAXEL
     Indication: SQUAMOUS CELL CARCINOMA OF LUNG
     Dosage: 180 MILLIGRAM
     Route: 041
     Dates: start: 20200529, end: 20200605
  11. RECOMBINANT HUMAN ERYTHROPOIETIN [Concomitant]
     Active Substance: ERYTHROPOIETIN
     Indication: ANAEMIA
     Dosage: 10000 IU (INTERNATIONAL UNIT)
     Route: 058
     Dates: start: 20200609
  12. RECOMBINANT HUMAN GRANULOCYTE COLONY?STIMULATING FACTOR [Concomitant]
     Active Substance: GRANULOCYTE COLONY-STIMULATING FACTOR NOS
     Route: 058
     Dates: start: 20200724

REACTIONS (2)
  - Squamous cell carcinoma of lung [Fatal]
  - Thrombocytopenia [Not Recovered/Not Resolved]

NARRATIVE: CASE EVENT DATE: 20200724
